FAERS Safety Report 5744578-4 (Version None)
Quarter: 2008Q2

REPORT INFORMATION
  Report Type: 
  Country: None (occurrence: None)
  Receive Date: 20080520
  Receipt Date: 20080519
  Transmission Date: 20081010
  Serious: Yes (Death, Life-Threatening, Hospitalization)
  Sender: FDA-Public Use
  Company Number: US-BOEHRINGER INGELHEIM GMBH, GERMANY-2008-BP-07750RO

PATIENT
  Age: 31 Year
  Sex: Female

DRUGS (4)
  1. MERCAPTOPURINE [Suspect]
  2. PURINETHOL [Suspect]
  3. PROPYL-THIOURACIL [Concomitant]
     Indication: HYPERTHYROIDISM
  4. VINATE II [Concomitant]

REACTIONS (7)
  - ABORTION SPONTANEOUS [None]
  - DEATH [None]
  - FATIGUE [None]
  - HAEMORRHAGE [None]
  - MEDICATION ERROR [None]
  - PYREXIA [None]
  - SEPSIS [None]
